FAERS Safety Report 19609912 (Version 3)
Quarter: 2022Q2

REPORT INFORMATION
  Report Type: Report from Study
  Country: US (occurrence: US)
  Receive Date: 20210726
  Receipt Date: 20220615
  Transmission Date: 20220721
  Serious: Yes (Other)
  Sender: FDA-Public Use
  Company Number: NVSC2021US163470

PATIENT
  Sex: Female

DRUGS (2)
  1. COSENTYX [Suspect]
     Active Substance: SECUKINUMAB
     Indication: Psoriatic arthropathy
     Dosage: 150 MG/KG, QMO
     Route: 058
  2. COSENTYX [Suspect]
     Active Substance: SECUKINUMAB
     Dosage: UNK
     Route: 065

REACTIONS (10)
  - Ankylosing spondylitis [Unknown]
  - Back pain [Unknown]
  - Spinal pain [Unknown]
  - Psoriatic arthropathy [Unknown]
  - Insomnia [Unknown]
  - Spinal deformity [Unknown]
  - Nasopharyngitis [Unknown]
  - Device temperature issue [Unknown]
  - Incorrect dose administered [Unknown]
  - Injection site pain [Unknown]
